FAERS Safety Report 16113222 (Version 1)
Quarter: 2019Q1

REPORT INFORMATION
  Report Type: Spontaneous
  Country: FR (occurrence: FR)
  Receive Date: 20190325
  Receipt Date: 20190325
  Transmission Date: 20190418
  Serious: Yes (Hospitalization, Other)
  Sender: FDA-Public Use
  Company Number: FR-PFIZER INC-2019123538

PATIENT
  Age: 42 Year
  Sex: Male

DRUGS (7)
  1. LOXAPINE SUCCINATE. [Suspect]
     Active Substance: LOXAPINE SUCCINATE
     Indication: PARANOID PERSONALITY DISORDER
     Dosage: 300 MG, 1X/DAY
     Route: 048
     Dates: start: 20190208, end: 20190211
  2. CLOZAPINE. [Suspect]
     Active Substance: CLOZAPINE
     Indication: PARANOID PERSONALITY DISORDER
     Dosage: 400 MG, 1X/DAY
     Route: 048
     Dates: start: 20190208, end: 20190211
  3. TROPATEPINE HYDROCHLORIDE [Suspect]
     Active Substance: TROPATEPINE HYDROCHLORIDE
     Dosage: 20 MG, 1X/DAY
     Route: 048
     Dates: start: 20190208, end: 20190211
  4. LORMETAZEPAM [Suspect]
     Active Substance: LORMETAZEPAM
     Indication: PARANOID PERSONALITY DISORDER
     Dosage: 2 MG, 1X/DAY
     Route: 048
     Dates: end: 20190208
  5. NITRAZEPAM [Concomitant]
     Active Substance: NITRAZEPAM
     Dosage: UNK
  6. ALPRAZOLAM. [Suspect]
     Active Substance: ALPRAZOLAM
     Indication: PARANOID PERSONALITY DISORDER
     Dosage: 1.5 MG, 1X/DAY
     Route: 048
     Dates: end: 20190208
  7. AMANTADIN [AMANTADINE HYDROCHLORIDE] [Concomitant]
     Dosage: UNK

REACTIONS (2)
  - Seizure [Recovered/Resolved]
  - Drug withdrawal convulsions [Recovered/Resolved]

NARRATIVE: CASE EVENT DATE: 20190211
